FAERS Safety Report 15354544 (Version 7)
Quarter: 2018Q4

REPORT INFORMATION
  Report Type: Report from Study
  Country: None (occurrence: GB)
  Receive Date: 20180906
  Receipt Date: 20181129
  Transmission Date: 20190204
  Serious: Yes (Hospitalization)
  Sender: FDA-Public Use
  Company Number: GB-ABBVIE-18S-167-2474610-00

PATIENT
  Sex: Female

DRUGS (1)
  1. DUODOPA [Suspect]
     Active Substance: CARBIDOPA\LEVODOPA
     Indication: PARKINSON^S DISEASE
     Dosage: CASSETTES DAILY
     Route: 050

REACTIONS (4)
  - Incorrect route of product administration [Unknown]
  - Hypophagia [Unknown]
  - Abdominal pain [Unknown]
  - Fall [Unknown]

NARRATIVE: CASE EVENT DATE: 2018
